FAERS Safety Report 9120981 (Version 2)
Quarter: 2013Q1

REPORT INFORMATION
  Report Type: Spontaneous
  Country: PH (occurrence: PH)
  Receive Date: 20130226
  Receipt Date: 20130305
  Transmission Date: 20140127
  Serious: Yes (Hospitalization)
  Sender: FDA-Public Use
  Company Number: PH-MERCK-1302PHL010715

PATIENT
  Age: 62 Year
  Sex: Male

DRUGS (1)
  1. JANUVIA [Suspect]
     Dosage: 1 TABLET, QD
     Route: 048
     Dates: end: 2012

REACTIONS (4)
  - Pneumonia [Unknown]
  - Endotracheal intubation [Unknown]
  - Tracheostomy [Unknown]
  - Pulmonary mass [Unknown]
